FAERS Safety Report 5246254-3 (Version None)
Quarter: 2007Q1

REPORT INFORMATION
  Report Type: 
  Country: None (occurrence: None)
  Receive Date: 20070221
  Receipt Date: 20070214
  Transmission Date: 20070707
  Serious: Yes (Hospitalization)
  Sender: FDA-Public Use
  Company Number: S07-FRA-00532-01

PATIENT
  Age: 60 Year
  Sex: Male

DRUGS (11)
  1. CITALOPRAM HYDROBROMIDE [Suspect]
     Indication: DEPRESSION
     Dosage: 40 MG QD PO
     Route: 048
     Dates: start: 20061111
  2. IRBESARTAN [Suspect]
     Indication: ESSENTIAL HYPERTENSION
     Dosage: 300 MG QD PO
     Route: 048
     Dates: start: 20061111, end: 20061116
  3. LASIX [Suspect]
     Indication: ESSENTIAL HYPERTENSION
     Dosage: 20 MG QD PO
     Route: 048
     Dates: start: 20061111, end: 20061120
  4. ALLOPURINOL [Concomitant]
  5. GLUCOPHAGE [Concomitant]
  6. LEXOMIL (BROMAZEPAM) [Concomitant]
  7. PANTOPRAZOLE SODIUM [Concomitant]
  8. FLECAINIDE ACETATE [Concomitant]
  9. PERFALGAN (PARACETAMOL) [Concomitant]
  10. MEPRONIZINE [Concomitant]
  11. PREVISCAN (PENTOXIFYLLINE) [Concomitant]

REACTIONS (8)
  - DEHYDRATION [None]
  - HYPERKALAEMIA [None]
  - HYPONATRAEMIA [None]
  - INTERNATIONAL NORMALISED RATIO INCREASED [None]
  - METABOLIC ACIDOSIS [None]
  - RENAL CYST [None]
  - RENAL FAILURE ACUTE [None]
  - VOMITING [None]
